FAERS Safety Report 20369946 (Version 1)
Quarter: 2022Q1

REPORT INFORMATION
  Report Type: Spontaneous
  Country: US (occurrence: None)
  Receive Date: 20220122
  Receipt Date: 20220122
  Transmission Date: 20220423
  Serious: No
  Sender: FDA-Public Use
  Company Number: None

PATIENT
  Age: 33 Year
  Sex: Female
  Weight: 112.5 kg

DRUGS (2)
  1. ALLEGRA [Suspect]
     Active Substance: FEXOFENADINE HYDROCHLORIDE
     Indication: Multiple allergies
     Dosage: FREQUENCY : DAILY;?QUANTITY: 150 TABLETS
     Route: 048
     Dates: start: 20220115, end: 20220121
  2. NERVIVE [Concomitant]

REACTIONS (6)
  - Dyspnoea [None]
  - Dyspnoea [None]
  - Feeling abnormal [None]
  - Coordination abnormal [None]
  - Gait disturbance [None]
  - Mobility decreased [None]

NARRATIVE: CASE EVENT DATE: 20220121
